FAERS Safety Report 4491415-4 (Version None)
Quarter: 2004Q4

REPORT INFORMATION
  Report Type: 
  Country: None (occurrence: None)
  Receive Date: 20041101
  Receipt Date: 20041101
  Transmission Date: 20050328
  Serious: Yes (Life-Threatening, Hospitalization)
  Sender: FDA-Public Use
  Company Number: None

PATIENT
  Age: 47 Year
  Sex: Female
  Weight: 77.5651 kg

DRUGS (3)
  1. KLONOPIN [Suspect]
     Indication: ANXIETY DISORDER
     Dosage: 1 TAB 2X DAILY ORAL
     Route: 048
     Dates: start: 20040709, end: 20040709
  2. KLONOPIN [Suspect]
     Indication: MAJOR DEPRESSION
     Dosage: 1 TAB 2X DAILY ORAL
     Route: 048
     Dates: start: 20040709, end: 20040709
  3. KLONOPIN [Suspect]
     Indication: POST-TRAUMATIC STRESS DISORDER
     Dosage: 1 TAB 2X DAILY ORAL
     Route: 048
     Dates: start: 20040709, end: 20040709

REACTIONS (8)
  - AMNESIA [None]
  - COMA [None]
  - FEELING ABNORMAL [None]
  - MAJOR DEPRESSION [None]
  - MULTIPLE DRUG OVERDOSE [None]
  - POST-TRAUMATIC STRESS DISORDER [None]
  - SUICIDAL IDEATION [None]
  - SUICIDE ATTEMPT [None]
